FAERS Safety Report 9518655 (Version 1)
Quarter: 2013Q3

REPORT INFORMATION
  Report Type: Spontaneous
  Country: US (occurrence: None)
  Receive Date: 20130910
  Receipt Date: 20130910
  Transmission Date: 20140515
  Serious: Yes (Other)
  Sender: FDA-Public Use
  Company Number: ALK-2013-001892

PATIENT
  Age: 44 Year
  Sex: Female
  Weight: 71.6 kg

DRUGS (7)
  1. VIVITROL (VIVITROL_NDA) INJECTION, 380MG [Suspect]
     Indication: ALCOHOLISM
     Route: 030
     Dates: start: 20130709, end: 20130709
  2. BEYAZ (CALCIUM LEVOMEFOLATE, DROSPIRENONE, ETHINYLESTRADIOL BETADEX CLATHRATE) [Concomitant]
  3. LEXAPRO (ESCITALOPRAM OXALATE) [Concomitant]
  4. TRAZODONE (TRAZODONE HYDROCHLORIDE) [Concomitant]
  5. VITAMINS NOS (VITAMINS NOS) [Concomitant]
  6. TRAMADOL (TRAMADOL) [Concomitant]
  7. LORYNA (DROSPIRENONE AND ETHINYLESTRADIOL) [Concomitant]

REACTIONS (7)
  - Injection site mass [None]
  - Injection site reaction [None]
  - Injection site induration [None]
  - Injection site erythema [None]
  - Injection site warmth [None]
  - Injection site pain [None]
  - Injection site discolouration [None]
